FAERS Safety Report 8438631-4 (Version None)
Quarter: 2012Q2

REPORT INFORMATION
  Report Type: 
  Country: None (occurrence: None)
  Receive Date: 20120615
  Receipt Date: 20120608
  Transmission Date: 20120825
  Serious: Yes (Other)
  Sender: FDA-Public Use
  Company Number: US-PFIZER INC-2009314335

PATIENT
  Sex: Male

DRUGS (6)
  1. DILANTIN-125 [Suspect]
     Indication: CONVULSION
     Dosage: 5MG/KG/DAY DIVIDED DOSES TWICE IN A DAY
     Dates: start: 20080522
  2. DILANTIN [Suspect]
     Dosage: 50MG INFATABS ONE AND HALF TABLET (75 MG) TWICE DAILY AND THREE TABLETS (150 MG) AT BED TIME
     Route: 048
     Dates: start: 20080524
  3. DILANTIN [Suspect]
     Dosage: 75 MG, 2X/DAY
     Route: 048
     Dates: start: 20080629, end: 20080629
  4. DILANTIN [Suspect]
     Dosage: 50MG INFATABS TWO TABLETS (100MG) IN THE MORNING AND TWO TABLETS (100MG) IN THE NIGHT
     Route: 048
     Dates: start: 20080618
  5. DILANTIN [Suspect]
     Dosage: 50 MG, 3X/DAY
     Route: 048
     Dates: start: 20080523, end: 20080618
  6. DILANTIN [Suspect]
     Indication: CONVULSION
     Dosage: UNK
     Route: 042

REACTIONS (1)
  - STEVENS-JOHNSON SYNDROME [None]
